FAERS Safety Report 9529020 (Version 1)
Quarter: 2013Q1

REPORT INFORMATION
  Report Type: Spontaneous
  Country: US (occurrence: None)
  Receive Date: 20130320
  Receipt Date: 20130320
  Transmission Date: 20140127
  Serious: Yes (Death, Other)
  Sender: FDA-Public Use
  Company Number: 075142

PATIENT
  Age: 32 Year
  Sex: Female

DRUGS (1)
  1. ALPRAZOLAM [Suspect]
     Route: 048

REACTIONS (1)
  - Drug abuse [None]
